FAERS Safety Report 9835781 (Version 2)
Quarter: 2015Q1

REPORT INFORMATION
  Report Type: Spontaneous
  Country: DE (occurrence: DE)
  Receive Date: 20140122
  Receipt Date: 20150331
  Transmission Date: 20150721
  Serious: Yes (Hospitalization, Other)
  Sender: FDA-Public Use
  Company Number: PHHY2014DE005174

PATIENT
  Age: 9 Year
  Sex: Male
  Weight: 32 kg

DRUGS (4)
  1. TAVOR [Concomitant]
     Active Substance: LORAZEPAM
     Indication: PRODUCT USED FOR UNKNOWN INDICATION
     Route: 065
  2. RITALIN LA [Suspect]
     Active Substance: METHYLPHENIDATE HYDROCHLORIDE
     Indication: TIC
  3. MEDIKINET//METHYLPHENIDATE [Suspect]
     Active Substance: METHYLPHENIDATE
     Indication: PRODUCT USED FOR UNKNOWN INDICATION
     Dosage: 5 MG, UNK
     Route: 048
  4. RITALIN LA [Suspect]
     Active Substance: METHYLPHENIDATE HYDROCHLORIDE
     Indication: ATTENTION DEFICIT/HYPERACTIVITY DISORDER
     Dosage: UNK
     Route: 048
     Dates: end: 201309

REACTIONS (17)
  - Benign intracranial hypertension [Unknown]
  - Somnolence [Unknown]
  - Hypoaesthesia [Unknown]
  - Depressed level of consciousness [Unknown]
  - Hemiplegia [Unknown]
  - Abnormal behaviour [Unknown]
  - Muscle spasms [Unknown]
  - Seizure [Unknown]
  - Neurological symptom [Unknown]
  - Speech disorder [Unknown]
  - Tremor [Unknown]
  - CSF pressure increased [Unknown]
  - Gliosis [Unknown]
  - Pyrexia [Unknown]
  - Cough [Unknown]
  - Salivary hypersecretion [Unknown]
  - Nasopharyngitis [Unknown]

NARRATIVE: CASE EVENT DATE: 201309
